FAERS Safety Report 7947916-7 (Version None)
Quarter: 2011Q4

REPORT INFORMATION
  Report Type: 
  Country: None (occurrence: None)
  Receive Date: 20111125
  Receipt Date: 20111115
  Transmission Date: 20120403
  Serious: Yes (Death)
  Sender: FDA-Public Use
  Company Number: JPI-P-018287

PATIENT
  Age: 42 Year
  Sex: Female

DRUGS (8)
  1. TRAMADOL HYDROCHLORIDE [Concomitant]
  2. ACETAMINOPHEN [Concomitant]
  3. UNSPECIFIED EPIDURAL NARCOTIC INJECTIONS [Concomitant]
  4. ANTIDEPRESSANT THERAPY [Concomitant]
  5. XYREM [Suspect]
     Indication: CATAPLEXY
     Dosage: 4.5 GM (2.25 GM, 2 IN 1 D), ORAL (3.5 GM FIRST DOSE/ 3 GM SECOND DOSE), ORAL
     Route: 048
     Dates: start: 20111024, end: 20111031
  6. XYREM [Suspect]
     Indication: CATAPLEXY
     Dosage: 4.5 GM (2.25 GM, 2 IN 1 D), ORAL (3.5 GM FIRST DOSE/ 3 GM SECOND DOSE), ORAL
     Route: 048
     Dates: end: 20110101
  7. XYREM [Suspect]
     Indication: CATAPLEXY
     Dosage: 4.5 GM (2.25 GM, 2 IN 1 D), ORAL (3.5 GM FIRST DOSE/ 3 GM SECOND DOSE), ORAL
     Route: 048
     Dates: start: 20110831, end: 20110101
  8. IBUPROFEN [Concomitant]

REACTIONS (1)
  - DEATH [None]
